FAERS Safety Report 21606174 (Version 3)
Quarter: 2023Q1

REPORT INFORMATION
  Report Type: Report from Study
  Country: US (occurrence: US)
  Receive Date: 20221117
  Receipt Date: 20230207
  Transmission Date: 20230417
  Serious: No
  Sender: FDA-Public Use
  Company Number: US-002147023-NVSC2022US256835

PATIENT
  Sex: Male

DRUGS (1)
  1. PROMACTA [Suspect]
     Active Substance: ELTROMBOPAG OLAMINE
     Indication: Product used for unknown indication
     Dosage: UNK
     Route: 065

REACTIONS (8)
  - Hypoacusis [Unknown]
  - Urinary tract infection [Unknown]
  - Dysphagia [Unknown]
  - Urinary incontinence [Unknown]
  - Confusional state [Unknown]
  - Adverse drug reaction [Unknown]
  - Nausea [Unknown]
  - Asthenia [Unknown]
